FAERS Safety Report 8499468-3 (Version None)
Quarter: 2012Q2

REPORT INFORMATION
  Report Type: 
  Country: None (occurrence: None)
  Receive Date: 20120405
  Receipt Date: 20100304
  Transmission Date: 20120825
  Serious: Yes (Other)
  Sender: FDA-Public Use
  Company Number: PHEH2010US02721

PATIENT
  Age: 86 Year
  Sex: Female
  Weight: 54.9 kg

DRUGS (8)
  1. SINEMET [Concomitant]
  2. CALCIUM WITH VITAMIN D (CALCIUM PHOSPHATE, CALCIUM SODIUM LACTATE, ERG [Concomitant]
  3. LEXAPRO [Concomitant]
  4. RECLAST [Suspect]
     Indication: OSTEOPOROSIS
     Dosage: 5 MG, INFUSION
     Dates: start: 20090224
  5. NEXIUM [Concomitant]
  6. MIRALAX [Concomitant]
  7. FLONASE [Concomitant]
  8. EXELON [Concomitant]

REACTIONS (3)
  - BONE DISORDER [None]
  - OSTEONECROSIS OF JAW [None]
  - SURGERY [None]
